FAERS Safety Report 19302633 (Version 1)
Quarter: 2021Q2

REPORT INFORMATION
  Report Type: Spontaneous
  Country: ZA (occurrence: ZA)
  Receive Date: 20210525
  Receipt Date: 20210525
  Transmission Date: 20210717
  Serious: Yes (Life-Threatening, Hospitalization)
  Sender: FDA-Public Use
  Company Number: ZA-TEVA-2021-ZA-1914774

PATIENT
  Age: 61 Year
  Sex: Male

DRUGS (8)
  1. 5?FLUOROURACIL [Suspect]
     Active Substance: FLUOROURACIL
     Indication: COLORECTAL CANCER
     Dosage: PART OF FOLFOX6 REGIMEN
     Route: 065
  2. OXALIPLATIN. [Suspect]
     Active Substance: OXALIPLATIN
     Indication: COLORECTAL CANCER
     Dosage: PART OF FOLFOX6 REGIMEN
     Route: 065
  3. OXALIPLATIN. [Suspect]
     Active Substance: OXALIPLATIN
     Dosage: SINGLE DOSE; THREE ADDITIONAL CYCLES (FULL DOSES) WERE GIVEN AT TWO?WEEKLY INTERVALS
     Route: 065
  4. IRINOTECAN [Suspect]
     Active Substance: IRINOTECAN
     Indication: COLORECTAL CANCER
     Dosage: PART OF IROX REGIMEN; SCHEDULED FOR 12 CYCLES
     Route: 042
  5. FOLINIC ACID [Suspect]
     Active Substance: LEUCOVORIN
     Indication: COLORECTAL CANCER
     Dosage: PART OF FOLFOX6 REGIMEN
     Route: 065
  6. BEVACIZUMAB. [Suspect]
     Active Substance: BEVACIZUMAB
     Indication: COLORECTAL CANCER
     Route: 065
  7. BEVACIZUMAB. [Suspect]
     Active Substance: BEVACIZUMAB
     Dosage: SCHEDULED FOR 12 CYCLES
     Route: 065
  8. OXALIPLATIN. [Suspect]
     Active Substance: OXALIPLATIN
     Dosage: PART OF IROX REGIMEN; SCHEDULED FOR 12 CYCLES
     Route: 065

REACTIONS (23)
  - Pancytopenia [Unknown]
  - Mucosal inflammation [Unknown]
  - Liver disorder [Recovered/Resolved]
  - Neutropenic sepsis [Recovered/Resolved]
  - Malnutrition [Unknown]
  - Resting tremor [Unknown]
  - Encephalopathy [Unknown]
  - Ataxia [Unknown]
  - Pleural effusion [Unknown]
  - Myelosuppression [Recovered/Resolved]
  - Portal hypertension [Recovered/Resolved]
  - Fibrosis [Recovered/Resolved]
  - Neutropenia [Unknown]
  - Acute hepatic failure [Recovered/Resolved]
  - Psychomotor retardation [Unknown]
  - Diarrhoea [Unknown]
  - Alopecia [Unknown]
  - Neuropathy peripheral [Unknown]
  - Neutropenic colitis [Unknown]
  - Intestinal perforation [Unknown]
  - Pneumatosis intestinalis [Unknown]
  - Rectal perforation [Recovered/Resolved]
  - Thrombocytopenia [Recovered/Resolved]
